FAERS Safety Report 9241896 (Version 5)
Quarter: 2014Q1

REPORT INFORMATION
  Report Type: Spontaneous
  Country: US (occurrence: US)
  Receive Date: 20130419
  Receipt Date: 20140102
  Transmission Date: 20141002
  Serious: Yes (Hospitalization, Other)
  Sender: FDA-Public Use
  Company Number: US-PFIZER INC-2013120500

PATIENT
  Age: 80 Year
  Sex: Male

DRUGS (2)
  1. INLYTA [Suspect]
     Indication: RENAL CANCER
     Dosage: 1 MG, UNK
     Dates: start: 20130403
  2. INLYTA [Suspect]
     Dosage: 3 MG (1MG X 3), 2X/DAY
     Dates: start: 20130404

REACTIONS (6)
  - Urinary retention [Unknown]
  - Pericardial effusion [Unknown]
  - Cardiac failure [Unknown]
  - Urine odour abnormal [Unknown]
  - Chromaturia [Unknown]
  - Dehydration [Unknown]
